FAERS Safety Report 18932822 (Version 1)
Quarter: 2021Q1

REPORT INFORMATION
  Report Type: Spontaneous
  Country: US (occurrence: US)
  Receive Date: 20210223
  Receipt Date: 20210223
  Transmission Date: 20210420
  Serious: Yes (Other)
  Sender: FDA-Public Use
  Company Number: None

PATIENT
  Age: 81 Year
  Sex: Male
  Weight: 90.17 kg

DRUGS (1)
  1. BAMLANIVIMAB. [Suspect]
     Active Substance: BAMLANIVIMAB
     Indication: COVID-19
     Route: 040
     Dates: start: 20210218, end: 20210218

REACTIONS (8)
  - Mental status changes [None]
  - Dyspnoea [None]
  - Loss of consciousness [None]
  - Vomiting [None]
  - Confusional state [None]
  - Pyrexia [None]
  - Respiratory rate increased [None]
  - Incontinence [None]

NARRATIVE: CASE EVENT DATE: 20210218
